FAERS Safety Report 25433209 (Version 1)
Quarter: 2025Q2

REPORT INFORMATION
  Report Type: Spontaneous
  Country: CA (occurrence: CA)
  Receive Date: 20250613
  Receipt Date: 20250613
  Transmission Date: 20250716
  Serious: Yes (Death, Life-Threatening, Hospitalization, Disabling, Congenital Anomaly, Other)
  Sender: Haleon PLC
  Company Number: CA-HALEON-2246653

PATIENT
  Age: 80 Year
  Sex: Male

DRUGS (206)
  1. FLUTICASONE [Suspect]
     Active Substance: FLUTICASONE
     Indication: Product used for unknown indication
  2. FLUTICASONE [Suspect]
     Active Substance: FLUTICASONE
     Indication: Nutritional supplementation
  3. ALLOPURINOL [Suspect]
     Active Substance: ALLOPURINOL
     Indication: Product used for unknown indication
     Route: 048
  4. ALLOPURINOL [Suspect]
     Active Substance: ALLOPURINOL
     Indication: Blood uric acid increased
  5. ALLOPURINOL [Suspect]
     Active Substance: ALLOPURINOL
     Route: 048
  6. ALLOPURINOL [Suspect]
     Active Substance: ALLOPURINOL
     Route: 048
  7. ALLOPURINOL [Suspect]
     Active Substance: ALLOPURINOL
  8. ALLOPURINOL [Suspect]
     Active Substance: ALLOPURINOL
  9. ALLOPURINOL [Suspect]
     Active Substance: ALLOPURINOL
     Route: 048
  10. ALLOPURINOL [Suspect]
     Active Substance: ALLOPURINOL
     Route: 048
  11. CEFTRIAXONE SODIUM [Suspect]
     Active Substance: CEFTRIAXONE SODIUM
     Indication: Bacterial infection
     Route: 042
  12. CEFTRIAXONE SODIUM [Suspect]
     Active Substance: CEFTRIAXONE SODIUM
     Route: 042
  13. CEFTRIAXONE SODIUM [Suspect]
     Active Substance: CEFTRIAXONE SODIUM
  14. CEFTRIAXONE SODIUM [Suspect]
     Active Substance: CEFTRIAXONE SODIUM
  15. DOBUTAMINE [Suspect]
     Active Substance: DOBUTAMINE HYDROCHLORIDE
     Indication: Product used for unknown indication
     Route: 042
  16. DOBUTAMINE [Suspect]
     Active Substance: DOBUTAMINE HYDROCHLORIDE
     Indication: Cardiogenic shock
     Route: 042
  17. DOBUTAMINE [Suspect]
     Active Substance: DOBUTAMINE HYDROCHLORIDE
  18. DOBUTAMINE [Suspect]
     Active Substance: DOBUTAMINE HYDROCHLORIDE
  19. GABAPENTIN [Suspect]
     Active Substance: GABAPENTIN
     Indication: Product used for unknown indication
     Route: 048
  20. GABAPENTIN [Suspect]
     Active Substance: GABAPENTIN
     Indication: Neuralgia
     Route: 048
  21. GABAPENTIN [Suspect]
     Active Substance: GABAPENTIN
     Route: 048
  22. GABAPENTIN [Suspect]
     Active Substance: GABAPENTIN
  23. GABAPENTIN [Suspect]
     Active Substance: GABAPENTIN
     Route: 048
  24. HEPARIN SODIUM [Suspect]
     Active Substance: HEPARIN SODIUM
     Indication: Product used for unknown indication
     Dosage: SOLUTION FOR INJECTION/INFUSION
     Route: 017
  25. HEPARIN SODIUM [Suspect]
     Active Substance: HEPARIN SODIUM
     Indication: Anticoagulant therapy
     Route: 042
  26. HEPARIN SODIUM [Suspect]
     Active Substance: HEPARIN SODIUM
     Route: 042
  27. HEPARIN SODIUM [Suspect]
     Active Substance: HEPARIN SODIUM
  28. HEPARIN SODIUM [Suspect]
     Active Substance: HEPARIN SODIUM
     Dosage: SOLUTION INTRAVENOUS
     Route: 042
  29. HEPARIN SODIUM [Suspect]
     Active Substance: HEPARIN SODIUM
     Route: 017
  30. HEPARIN SODIUM [Suspect]
     Active Substance: HEPARIN SODIUM
     Route: 042
  31. HEPARIN SODIUM [Suspect]
     Active Substance: HEPARIN SODIUM
     Route: 042
  32. HEPARIN SODIUM [Suspect]
     Active Substance: HEPARIN SODIUM
     Route: 042
  33. HEPARIN SODIUM [Suspect]
     Active Substance: HEPARIN SODIUM
     Route: 042
  34. HEPARIN SODIUM [Suspect]
     Active Substance: HEPARIN SODIUM
     Dosage: SOLUTION FOR INJECTION/INFUSION
     Route: 042
  35. HEPARIN SODIUM [Suspect]
     Active Substance: HEPARIN SODIUM
     Dosage: SOLUTION FOR INJECTION/INFUSION
     Route: 042
  36. HEPARIN SODIUM [Suspect]
     Active Substance: HEPARIN SODIUM
     Dosage: SOLUTION FOR INJECTION/INFUSION
     Route: 017
  37. HYDROMORPHONE [Suspect]
     Active Substance: HYDROMORPHONE
     Indication: Analgesic therapy
     Route: 058
  38. HYDROMORPHONE [Suspect]
     Active Substance: HYDROMORPHONE
     Route: 058
  39. HYDROMORPHONE [Suspect]
     Active Substance: HYDROMORPHONE
     Route: 058
  40. HYDROMORPHONE [Suspect]
     Active Substance: HYDROMORPHONE
     Route: 058
  41. HYDROMORPHONE [Suspect]
     Active Substance: HYDROMORPHONE
     Route: 058
  42. HYDROMORPHONE [Suspect]
     Active Substance: HYDROMORPHONE
     Route: 058
  43. HYDROMORPHONE [Suspect]
     Active Substance: HYDROMORPHONE
     Route: 058
  44. HYDROMORPHONE [Suspect]
     Active Substance: HYDROMORPHONE
     Route: 058
  45. HYDROMORPHONE [Suspect]
     Active Substance: HYDROMORPHONE
     Route: 058
  46. HYDROMORPHONE [Suspect]
     Active Substance: HYDROMORPHONE
     Route: 058
  47. HYDROMORPHONE [Suspect]
     Active Substance: HYDROMORPHONE
     Route: 058
  48. HYDROMORPHONE [Suspect]
     Active Substance: HYDROMORPHONE
     Route: 058
  49. HYDROMORPHONE HYDROCHLORIDE [Suspect]
     Active Substance: HYDROMORPHONE HYDROCHLORIDE
     Indication: Product used for unknown indication
     Route: 058
  50. HYDROMORPHONE HYDROCHLORIDE [Suspect]
     Active Substance: HYDROMORPHONE HYDROCHLORIDE
     Indication: Analgesic therapy
     Route: 058
  51. HYDROMORPHONE HYDROCHLORIDE [Suspect]
     Active Substance: HYDROMORPHONE HYDROCHLORIDE
     Route: 058
  52. HYDROMORPHONE HYDROCHLORIDE [Suspect]
     Active Substance: HYDROMORPHONE HYDROCHLORIDE
     Route: 058
  53. HYDROMORPHONE HYDROCHLORIDE [Suspect]
     Active Substance: HYDROMORPHONE HYDROCHLORIDE
     Route: 058
  54. HYDROMORPHONE HYDROCHLORIDE [Suspect]
     Active Substance: HYDROMORPHONE HYDROCHLORIDE
     Route: 058
  55. HYDROMORPHONE HYDROCHLORIDE [Suspect]
     Active Substance: HYDROMORPHONE HYDROCHLORIDE
     Route: 058
  56. HYDROMORPHONE HYDROCHLORIDE [Suspect]
     Active Substance: HYDROMORPHONE HYDROCHLORIDE
     Route: 058
  57. HYDROMORPHONE HYDROCHLORIDE [Suspect]
     Active Substance: HYDROMORPHONE HYDROCHLORIDE
     Route: 058
  58. HYDROMORPHONE HYDROCHLORIDE [Suspect]
     Active Substance: HYDROMORPHONE HYDROCHLORIDE
     Route: 058
  59. HYDROMORPHONE HYDROCHLORIDE [Suspect]
     Active Substance: HYDROMORPHONE HYDROCHLORIDE
     Route: 058
  60. HYDROMORPHONE HYDROCHLORIDE [Suspect]
     Active Substance: HYDROMORPHONE HYDROCHLORIDE
     Route: 058
  61. HYDROMORPHONE HYDROCHLORIDE [Suspect]
     Active Substance: HYDROMORPHONE HYDROCHLORIDE
     Route: 058
  62. HYDROMORPHONE HYDROCHLORIDE [Suspect]
     Active Substance: HYDROMORPHONE HYDROCHLORIDE
     Route: 058
  63. METRONIDAZOLE [Suspect]
     Active Substance: METRONIDAZOLE
     Indication: Bacterial infection
     Route: 048
  64. METRONIDAZOLE [Suspect]
     Active Substance: METRONIDAZOLE
  65. METRONIDAZOLE [Suspect]
     Active Substance: METRONIDAZOLE
  66. METRONIDAZOLE [Suspect]
     Active Substance: METRONIDAZOLE
  67. METRONIDAZOLE [Suspect]
     Active Substance: METRONIDAZOLE
  68. METRONIDAZOLE [Suspect]
     Active Substance: METRONIDAZOLE
     Route: 048
  69. METRONIDAZOLE [Suspect]
     Active Substance: METRONIDAZOLE
     Route: 048
  70. METRONIDAZOLE [Suspect]
     Active Substance: METRONIDAZOLE
     Route: 048
  71. METRONIDAZOLE [Suspect]
     Active Substance: METRONIDAZOLE
     Route: 048
  72. METRONIDAZOLE [Suspect]
     Active Substance: METRONIDAZOLE
     Route: 048
  73. METRONIDAZOLE [Suspect]
     Active Substance: METRONIDAZOLE
  74. NOREPINEPHRINE [Suspect]
     Active Substance: NOREPINEPHRINE
     Indication: Stress
     Route: 048
  75. NOREPINEPHRINE [Suspect]
     Active Substance: NOREPINEPHRINE
     Route: 042
  76. NOREPINEPHRINE [Suspect]
     Active Substance: NOREPINEPHRINE
     Route: 042
  77. NOREPINEPHRINE [Suspect]
     Active Substance: NOREPINEPHRINE
     Route: 048
  78. NOREPINEPHRINE [Suspect]
     Active Substance: NOREPINEPHRINE
  79. NOREPINEPHRINE [Suspect]
     Active Substance: NOREPINEPHRINE
     Route: 048
  80. POTASSIUM CHLORIDE [Suspect]
     Active Substance: POTASSIUM CHLORIDE
     Indication: Product used for unknown indication
  81. POTASSIUM CHLORIDE [Suspect]
     Active Substance: POTASSIUM CHLORIDE
     Indication: Constipation
     Dosage: DOSAGE: 17 UMOL/MG
     Route: 048
  82. ALBUTEROL [Suspect]
     Active Substance: ALBUTEROL
     Indication: Chronic obstructive pulmonary disease
     Route: 055
  83. ALBUTEROL [Suspect]
     Active Substance: ALBUTEROL
     Indication: Product used for unknown indication
     Route: 055
  84. ALBUTEROL [Suspect]
     Active Substance: ALBUTEROL
     Route: 055
  85. ALBUTEROL [Suspect]
     Active Substance: ALBUTEROL
     Route: 055
  86. ALBUTEROL [Suspect]
     Active Substance: ALBUTEROL
     Route: 055
  87. ALBUTEROL [Suspect]
     Active Substance: ALBUTEROL
     Route: 055
  88. ALBUTEROL [Suspect]
     Active Substance: ALBUTEROL
     Route: 055
  89. ALBUTEROL [Suspect]
     Active Substance: ALBUTEROL
     Route: 055
  90. ALBUTEROL [Suspect]
     Active Substance: ALBUTEROL
     Route: 055
  91. ALBUTEROL [Suspect]
     Active Substance: ALBUTEROL
     Route: 055
  92. ALBUTEROL [Suspect]
     Active Substance: ALBUTEROL
     Route: 055
  93. ALBUTEROL [Suspect]
     Active Substance: ALBUTEROL
     Route: 055
  94. ALBUTEROL [Suspect]
     Active Substance: ALBUTEROL
     Route: 055
  95. ALBUTEROL [Suspect]
     Active Substance: ALBUTEROL
     Route: 055
  96. ALBUTEROL [Suspect]
     Active Substance: ALBUTEROL
     Route: 055
  97. ALBUTEROL [Suspect]
     Active Substance: ALBUTEROL
     Route: 055
  98. ALBUTEROL [Suspect]
     Active Substance: ALBUTEROL
     Route: 055
  99. ALBUTEROL [Suspect]
     Active Substance: ALBUTEROL
     Route: 055
  100. ALBUTEROL [Suspect]
     Active Substance: ALBUTEROL
     Route: 055
  101. ALBUTEROL [Suspect]
     Active Substance: ALBUTEROL
     Route: 055
  102. ALBUTEROL [Suspect]
     Active Substance: ALBUTEROL
     Route: 055
  103. ALBUTEROL [Suspect]
     Active Substance: ALBUTEROL
     Route: 055
  104. ALBUTEROL [Suspect]
     Active Substance: ALBUTEROL
     Route: 055
  105. ALBUTEROL [Suspect]
     Active Substance: ALBUTEROL
     Route: 055
  106. ALBUTEROL [Suspect]
     Active Substance: ALBUTEROL
     Route: 055
  107. ALBUTEROL [Suspect]
     Active Substance: ALBUTEROL
     Route: 055
  108. ALBUTEROL [Suspect]
     Active Substance: ALBUTEROL
     Route: 055
  109. ALBUTEROL [Suspect]
     Active Substance: ALBUTEROL
  110. ALBUTEROL [Suspect]
     Active Substance: ALBUTEROL
  111. ALBUTEROL [Suspect]
     Active Substance: ALBUTEROL
     Route: 055
  112. ALBUTEROL [Suspect]
     Active Substance: ALBUTEROL
     Route: 055
  113. ALBUTEROL [Suspect]
     Active Substance: ALBUTEROL
     Route: 055
  114. ALBUTEROL [Suspect]
     Active Substance: ALBUTEROL
     Route: 055
  115. ALBUTEROL [Suspect]
     Active Substance: ALBUTEROL
     Route: 055
  116. ALBUTEROL [Suspect]
     Active Substance: ALBUTEROL
     Route: 055
  117. ALBUTEROL [Suspect]
     Active Substance: ALBUTEROL
     Route: 055
  118. ALBUTEROL [Suspect]
     Active Substance: ALBUTEROL
     Route: 055
  119. ALBUTEROL [Suspect]
     Active Substance: ALBUTEROL
     Route: 055
  120. ALBUTEROL [Suspect]
     Active Substance: ALBUTEROL
     Route: 055
  121. ALBUTEROL [Suspect]
     Active Substance: ALBUTEROL
     Route: 055
  122. ALBUTEROL [Suspect]
     Active Substance: ALBUTEROL
     Route: 055
  123. AMIODARONE HYDROCHLORIDE [Suspect]
     Active Substance: AMIODARONE HYDROCHLORIDE
     Indication: Ventricular fibrillation
     Route: 042
  124. AMIODARONE HYDROCHLORIDE [Suspect]
     Active Substance: AMIODARONE HYDROCHLORIDE
     Indication: Drug therapy
     Route: 042
  125. AMIODARONE HYDROCHLORIDE [Suspect]
     Active Substance: AMIODARONE HYDROCHLORIDE
     Indication: Product used for unknown indication
     Route: 042
  126. AMIODARONE HYDROCHLORIDE [Suspect]
     Active Substance: AMIODARONE HYDROCHLORIDE
     Route: 042
  127. AMIODARONE HYDROCHLORIDE [Suspect]
     Active Substance: AMIODARONE HYDROCHLORIDE
     Route: 042
  128. AMIODARONE HYDROCHLORIDE [Suspect]
     Active Substance: AMIODARONE HYDROCHLORIDE
     Route: 042
  129. AMIODARONE HYDROCHLORIDE [Suspect]
     Active Substance: AMIODARONE HYDROCHLORIDE
  130. AMIODARONE HYDROCHLORIDE [Suspect]
     Active Substance: AMIODARONE HYDROCHLORIDE
  131. AMIODARONE HYDROCHLORIDE [Suspect]
     Active Substance: AMIODARONE HYDROCHLORIDE
  132. AMIODARONE HYDROCHLORIDE [Suspect]
     Active Substance: AMIODARONE HYDROCHLORIDE
  133. AMIODARONE HYDROCHLORIDE [Suspect]
     Active Substance: AMIODARONE HYDROCHLORIDE
  134. AMIODARONE HYDROCHLORIDE [Suspect]
     Active Substance: AMIODARONE HYDROCHLORIDE
     Route: 042
  135. AMIODARONE HYDROCHLORIDE [Suspect]
     Active Substance: AMIODARONE HYDROCHLORIDE
  136. AMIODARONE HYDROCHLORIDE [Suspect]
     Active Substance: AMIODARONE HYDROCHLORIDE
  137. AMIODARONE HYDROCHLORIDE [Suspect]
     Active Substance: AMIODARONE HYDROCHLORIDE
  138. AMIODARONE HYDROCHLORIDE [Suspect]
     Active Substance: AMIODARONE HYDROCHLORIDE
  139. AMIODARONE HYDROCHLORIDE [Suspect]
     Active Substance: AMIODARONE HYDROCHLORIDE
  140. DOCUSATE SODIUM [Suspect]
     Active Substance: DOCUSATE SODIUM
     Indication: Product used for unknown indication
  141. LANSOPRAZOLE [Suspect]
     Active Substance: LANSOPRAZOLE
     Indication: Antacid therapy
     Route: 048
  142. LANSOPRAZOLE [Suspect]
     Active Substance: LANSOPRAZOLE
     Route: 048
  143. LANSOPRAZOLE [Suspect]
     Active Substance: LANSOPRAZOLE
     Route: 048
  144. ONDANSETRON [Suspect]
     Active Substance: ONDANSETRON
     Indication: Nausea
     Route: 042
  145. ONDANSETRON [Suspect]
     Active Substance: ONDANSETRON
     Indication: Vomiting
     Route: 042
  146. ONDANSETRON [Suspect]
     Active Substance: ONDANSETRON
     Route: 042
  147. ONDANSETRON [Suspect]
     Active Substance: ONDANSETRON
     Route: 042
  148. ONDANSETRON [Suspect]
     Active Substance: ONDANSETRON
     Route: 042
  149. ONDANSETRON [Suspect]
     Active Substance: ONDANSETRON
     Route: 042
  150. ONDANSETRON [Suspect]
     Active Substance: ONDANSETRON
     Route: 042
  151. ONDANSETRON [Suspect]
     Active Substance: ONDANSETRON
     Route: 042
  152. ONDANSETRON [Suspect]
     Active Substance: ONDANSETRON
     Route: 042
  153. ONDANSETRON [Suspect]
     Active Substance: ONDANSETRON
     Route: 042
  154. ONDANSETRON [Suspect]
     Active Substance: ONDANSETRON
     Route: 042
  155. ONDANSETRON [Suspect]
     Active Substance: ONDANSETRON
     Route: 042
  156. ONDANSETRON [Suspect]
     Active Substance: ONDANSETRON
     Route: 042
  157. ONDANSETRON [Suspect]
     Active Substance: ONDANSETRON
     Route: 042
  158. ONDANSETRON [Suspect]
     Active Substance: ONDANSETRON
     Route: 042
  159. ONDANSETRON [Suspect]
     Active Substance: ONDANSETRON
     Route: 042
  160. ONDANSETRON [Suspect]
     Active Substance: ONDANSETRON
     Route: 042
  161. ONDANSETRON [Suspect]
     Active Substance: ONDANSETRON
     Route: 042
  162. ONDANSETRON [Suspect]
     Active Substance: ONDANSETRON
     Route: 042
  163. ONDANSETRON [Suspect]
     Active Substance: ONDANSETRON
     Route: 042
  164. ONDANSETRON [Suspect]
     Active Substance: ONDANSETRON
     Route: 042
  165. ONDANSETRON [Suspect]
     Active Substance: ONDANSETRON
     Route: 042
  166. ONDANSETRON [Suspect]
     Active Substance: ONDANSETRON
     Route: 042
  167. ONDANSETRON [Suspect]
     Active Substance: ONDANSETRON
     Route: 042
  168. ONDANSETRON [Suspect]
     Active Substance: ONDANSETRON
     Route: 042
  169. ONDANSETRON [Suspect]
     Active Substance: ONDANSETRON
     Route: 042
  170. ONDANSETRON [Suspect]
     Active Substance: ONDANSETRON
     Route: 042
  171. ONDANSETRON [Suspect]
     Active Substance: ONDANSETRON
     Route: 042
  172. ONDANSETRON [Suspect]
     Active Substance: ONDANSETRON
     Route: 042
  173. ONDANSETRON [Suspect]
     Active Substance: ONDANSETRON
     Route: 042
  174. ONDANSETRON [Suspect]
     Active Substance: ONDANSETRON
     Route: 042
  175. ONDANSETRON [Suspect]
     Active Substance: ONDANSETRON
     Route: 042
  176. ONDANSETRON [Suspect]
     Active Substance: ONDANSETRON
     Route: 042
  177. ONDANSETRON [Suspect]
     Active Substance: ONDANSETRON
     Route: 042
  178. ONDANSETRON [Suspect]
     Active Substance: ONDANSETRON
     Route: 042
  179. ONDANSETRON [Suspect]
     Active Substance: ONDANSETRON
     Route: 042
  180. ONDANSETRON [Suspect]
     Active Substance: ONDANSETRON
     Route: 042
  181. SODIUM BICARBONATE [Suspect]
     Active Substance: SODIUM BICARBONATE
     Indication: Constipation
  182. SIMVASTATIN [Suspect]
     Active Substance: SIMVASTATIN
     Indication: Vitamin supplementation
  183. SIMVASTATIN [Suspect]
     Active Substance: SIMVASTATIN
     Indication: Blood cholesterol increased
  184. SIMVASTATIN [Suspect]
     Active Substance: SIMVASTATIN
     Indication: Product used for unknown indication
     Route: 048
  185. SIMVASTATIN [Suspect]
     Active Substance: SIMVASTATIN
     Route: 048
  186. SIMVASTATIN [Suspect]
     Active Substance: SIMVASTATIN
  187. THEOPHYLLINE [Suspect]
     Active Substance: THEOPHYLLINE
     Indication: Product used for unknown indication
  188. THEOPHYLLINE [Suspect]
     Active Substance: THEOPHYLLINE
  189. THEOPHYLLINE [Suspect]
     Active Substance: THEOPHYLLINE
  190. THEOPHYLLINE [Suspect]
     Active Substance: THEOPHYLLINE
  191. THEOPHYLLINE [Suspect]
     Active Substance: THEOPHYLLINE
  192. THEOPHYLLINE [Suspect]
     Active Substance: THEOPHYLLINE
  193. THEOPHYLLINE [Suspect]
     Active Substance: THEOPHYLLINE
  194. THEOPHYLLINE [Suspect]
     Active Substance: THEOPHYLLINE
  195. THEOPHYLLINE [Suspect]
     Active Substance: THEOPHYLLINE
  196. VASOPRESSIN [Suspect]
     Active Substance: VASOPRESSIN
     Indication: Thrombosis
     Route: 042
  197. VASOPRESSIN [Suspect]
     Active Substance: VASOPRESSIN
     Indication: Drug therapy
  198. VASOPRESSIN [Suspect]
     Active Substance: VASOPRESSIN
  199. VASOPRESSIN [Suspect]
     Active Substance: VASOPRESSIN
     Route: 017
  200. VASOPRESSIN [Suspect]
     Active Substance: VASOPRESSIN
     Route: 042
  201. VASOPRESSIN [Suspect]
     Active Substance: VASOPRESSIN
     Route: 042
  202. VITAMIN C [Suspect]
     Active Substance: ASCORBIC ACID
     Indication: Constipation
     Route: 048
  203. VITAMIN K1 [Suspect]
     Active Substance: PHYTONADIONE
     Indication: Vitamin supplementation
     Route: 042
  204. VITAMIN K1 [Suspect]
     Active Substance: PHYTONADIONE
  205. VITAMIN K1 [Suspect]
     Active Substance: PHYTONADIONE
     Route: 042
  206. VITAMIN K1 [Suspect]
     Active Substance: PHYTONADIONE
     Route: 042

REACTIONS (8)
  - Myasthenia gravis [Fatal]
  - Nausea [Fatal]
  - Neuralgia [Fatal]
  - Iron deficiency [Fatal]
  - Intentional product misuse [Fatal]
  - Incorrect route of product administration [Fatal]
  - Off label use [Fatal]
  - Product use in unapproved indication [Fatal]
